FAERS Safety Report 12389173 (Version 1)
Quarter: 2016Q2

REPORT INFORMATION
  Report Type: Spontaneous
  Country: HR (occurrence: HR)
  Receive Date: 20160520
  Receipt Date: 20160520
  Transmission Date: 20160815
  Serious: Yes (Other)
  Sender: FDA-Public Use
  Company Number: HR-PFIZER INC-2016261883

PATIENT
  Sex: Female

DRUGS (7)
  1. VITAMIN D /00107901/ [Concomitant]
     Active Substance: ERGOCALCIFEROL
  2. DECORTIN [Suspect]
     Active Substance: PREDNISONE
     Dosage: 10 MG
     Dates: end: 200712
  3. DECORTIN [Suspect]
     Active Substance: PREDNISONE
     Indication: RHEUMATOID ARTHRITIS
     Dosage: 5 MG, UNK
     Dates: start: 200707
  4. METHOTREXATE [Suspect]
     Active Substance: METHOTREXATE
     Dosage: 15 UNK, UNK
     Dates: start: 200712, end: 200802
  5. METHOTREXATE [Suspect]
     Active Substance: METHOTREXATE
     Indication: RHEUMATOID ARTHRITIS
     Dosage: 10 MG, WEEKLY
     Dates: start: 200707
  6. CALCIUM [Concomitant]
     Active Substance: CALCIUM
  7. FOLACIN /00024201/ [Concomitant]
     Active Substance: FOLIC ACID

REACTIONS (3)
  - Transaminases increased [Unknown]
  - Joint swelling [Unknown]
  - Polyarthritis [Unknown]

NARRATIVE: CASE EVENT DATE: 200712
